FAERS Safety Report 25240672 (Version 1)
Quarter: 2025Q2

REPORT INFORMATION
  Report Type: Spontaneous
  Country: CN (occurrence: CN)
  Receive Date: 20250425
  Receipt Date: 20250425
  Transmission Date: 20250716
  Serious: Yes (Death, Other)
  Sender: JOHNSON AND JOHNSON
  Company Number: CN-JNJFOC-20250425965

PATIENT

DRUGS (2)
  1. ERLEADA [Suspect]
     Active Substance: APALUTAMIDE
     Indication: Product used for unknown indication
     Route: 048
  2. ENZALUTAMIDE [Suspect]
     Active Substance: ENZALUTAMIDE
     Indication: Product used for unknown indication

REACTIONS (34)
  - Death [Fatal]
  - Dermatitis exfoliative generalised [Unknown]
  - Pulmonary fibrosis [Unknown]
  - Agranulocytosis [Unknown]
  - Dermatitis exfoliative [Unknown]
  - Drug reaction with eosinophilia and systemic symptoms [Unknown]
  - Stevens-Johnson syndrome [Unknown]
  - Toxic epidermal necrolysis [Unknown]
  - Cerebral haemorrhage [Unknown]
  - Neoplasm malignant [Unknown]
  - Seizure [Unknown]
  - Myocardial infarction [Unknown]
  - Cerebrovascular accident [Unknown]
  - Interstitial lung disease [Unknown]
  - Prostate cancer metastatic [Unknown]
  - Syncope [Unknown]
  - Hip fracture [Unknown]
  - Hypothyroidism [Unknown]
  - Cardiac failure [Unknown]
  - Disease progression [Unknown]
  - Rash [Unknown]
  - Fatigue [Unknown]
  - Hot flush [Unknown]
  - Weight decreased [Unknown]
  - Hypertension [Unknown]
  - Urinary tract infection [Unknown]
  - Rash pruritic [Unknown]
  - Taste disorder [Unknown]
  - Drug eruption [Unknown]
  - Rash erythematous [Unknown]
  - Blood thyroid stimulating hormone increased [Unknown]
  - Dysgeusia [Unknown]
  - Vertigo [Unknown]
  - Swelling face [Unknown]
